FAERS Safety Report 19856742 (Version 1)
Quarter: 2021Q3

REPORT INFORMATION
  Report Type: Report from Study
  Country: US (occurrence: US)
  Receive Date: 20210920
  Receipt Date: 20210920
  Transmission Date: 20211014
  Serious: No
  Sender: FDA-Public Use
  Company Number: US-GW PHARMA-201907USGW4321

PATIENT

DRUGS (2)
  1. EPIDIOLEX [Suspect]
     Active Substance: CANNABIDIOL
     Indication: PAIN
  2. EPIDIOLEX [Suspect]
     Active Substance: CANNABIDIOL
     Indication: MULTIPLE SCLEROSIS
     Dosage: 1.20 MG/KG/DAY, 30 MILLIGRAM, BID
     Route: 048
     Dates: start: 2019

REACTIONS (4)
  - Insurance issue [Unknown]
  - Inability to afford medication [Unknown]
  - Drug effective for unapproved indication [Unknown]
  - Product use in unapproved indication [Unknown]
